FAERS Safety Report 5169095-4 (Version None)
Quarter: 2006Q4

REPORT INFORMATION
  Report Type: 
  Country: None (occurrence: None)
  Receive Date: 20061211
  Receipt Date: 20061201
  Transmission Date: 20070319
  Serious: Yes (Other)
  Sender: FDA-Public Use
  Company Number: CH-ROCHE-473683

PATIENT
  Age: 38 Year
  Sex: Female

DRUGS (2)
  1. ROCEPHIN [Suspect]
     Indication: URINARY TRACT INFECTION
     Route: 041
     Dates: start: 20060913, end: 20060915
  2. CIPROFLOXACIN [Suspect]
     Indication: URINARY TRACT INFECTION
     Route: 048
     Dates: start: 20060915, end: 20060920

REACTIONS (2)
  - DRUG EXPOSURE DURING PREGNANCY [None]
  - INTRA-UTERINE DEATH [None]
